FAERS Safety Report 26043668 (Version 1)
Quarter: 2025Q4

REPORT INFORMATION
  Report Type: Spontaneous
  Country: US (occurrence: US)
  Receive Date: 20251113
  Receipt Date: 20251113
  Transmission Date: 20260118
  Serious: No
  Sender: MERCK SHARP & DOHME LLC
  Company Number: US-009507513-2348143

PATIENT
  Sex: Female
  Weight: 89.8 kg

DRUGS (20)
  1. SOTATERCEPT [Suspect]
     Active Substance: SOTATERCEPT
     Dosage: UNKNOWN
     Route: 058
  2. SOTATERCEPT [Suspect]
     Active Substance: SOTATERCEPT
  3. SOTATERCEPT [Suspect]
     Active Substance: SOTATERCEPT
  4. SOTATERCEPT [Suspect]
     Active Substance: SOTATERCEPT
  5. OMEPRAZOLE [Concomitant]
     Active Substance: OMEPRAZOLE
  6. ANORO ELLIPTA [Concomitant]
     Active Substance: UMECLIDINIUM BROMIDE\VILANTEROL TRIFENATATE
  7. VITAMIN D3 [Concomitant]
     Active Substance: CHOLECALCIFEROL
  8. MAGNESIUM [Concomitant]
     Active Substance: MAGNESIUM
  9. LOPERAMIDE [Concomitant]
     Active Substance: LOPERAMIDE
  10. SILDENAFIL [Concomitant]
     Active Substance: SILDENAFIL
  11. POTASSIUM CHLORIDE [Concomitant]
     Active Substance: POTASSIUM CHLORIDE
  12. METOPROLOL SUCCINATE [Concomitant]
     Active Substance: METOPROLOL SUCCINATE
  13. METFORMIN HYDROCHLORIDE [Concomitant]
     Active Substance: METFORMIN HYDROCHLORIDE
  14. IRON [Concomitant]
     Active Substance: IRON
  15. BUMETANIDE [Concomitant]
     Active Substance: BUMETANIDE
  16. OXYGEN [Concomitant]
     Active Substance: OXYGEN
  17. SPIRONOLACTONE [Concomitant]
     Active Substance: SPIRONOLACTONE
  18. CITALOPRAM HYDROBROMIDE [Concomitant]
     Active Substance: CITALOPRAM HYDROBROMIDE
  19. TRAZODONE HCL [Concomitant]
     Active Substance: TRAZODONE HYDROCHLORIDE
  20. REMODULIN [Suspect]
     Active Substance: TREPROSTINIL
     Indication: Pulmonary arterial hypertension
     Dosage: DOSAGE: 10 MG/ML 10MG/ML, 0.083  G/KG (SELF-FILLED CASSETTE WITH 3 ML, RATE OF 43 MCL/HR), CONTIN...
     Route: 058
     Dates: start: 20230411

REACTIONS (1)
  - Somnolence [Unknown]
